FAERS Safety Report 7177542-1 (Version None)
Quarter: 2010Q4

REPORT INFORMATION
  Report Type: 
  Country: None (occurrence: None)
  Receive Date: 20101220
  Receipt Date: 20101208
  Transmission Date: 20110411
  Serious: Yes (Hospitalization)
  Sender: FDA-Public Use
  Company Number: PHHY2010DE84073

PATIENT

DRUGS (2)
  1. MYFORTIC [Suspect]
     Indication: RENAL TRANSPLANT
  2. CELLCEPT [Concomitant]

REACTIONS (2)
  - GASTROINTESTINAL TUBE INSERTION [None]
  - SURGERY [None]
